FAERS Safety Report 5579331-8 (Version None)
Quarter: 2008Q1

REPORT INFORMATION
  Report Type: 
  Country: None (occurrence: None)
  Receive Date: 20080102
  Receipt Date: 20071219
  Transmission Date: 20080703
  Serious: Yes (Death, Hospitalization)
  Sender: FDA-Public Use
  Company Number: IT-ELI_LILLY_AND_COMPANY-IT200712003867

PATIENT
  Age: 82 Year
  Sex: Female

DRUGS (1)
  1. XIGRIS [Suspect]
     Indication: SEPTIC SHOCK
     Dosage: UNK, UNKNOWN
     Dates: start: 20050503, end: 20050505

REACTIONS (3)
  - DEATH [None]
  - GASTRIC HAEMORRHAGE [None]
  - UROGENITAL HAEMORRHAGE [None]
